FAERS Safety Report 23235670 (Version 2)
Quarter: 2023Q4

REPORT INFORMATION
  Report Type: Spontaneous
  Country: IN (occurrence: IN)
  Receive Date: 20231128
  Receipt Date: 20231128
  Transmission Date: 20240110
  Serious: Yes (Life-Threatening, Other)
  Sender: FDA-Public Use
  Company Number: IN-MLMSERVICE-20231113-4660769-1

PATIENT
  Age: 33 Year
  Sex: Male

DRUGS (4)
  1. DOXORUBICIN HYDROCHLORIDE [Suspect]
     Active Substance: DOXORUBICIN HYDROCHLORIDE
     Indication: Non-Hodgkin^s lymphoma
     Dosage: UNK
     Dates: start: 2017
  2. VINCRISTINE [Suspect]
     Active Substance: VINCRISTINE
     Indication: Non-Hodgkin^s lymphoma
     Dosage: UNK
     Dates: start: 2017
  3. CYCLOPHOSPHAMIDE [Suspect]
     Active Substance: CYCLOPHOSPHAMIDE
     Indication: Non-Hodgkin^s lymphoma
     Dosage: UNK
     Dates: start: 2017
  4. PREDNISONE [Suspect]
     Active Substance: PREDNISONE
     Indication: Non-Hodgkin^s lymphoma
     Dosage: UNK
     Dates: start: 2017

REACTIONS (2)
  - JC virus infection [Unknown]
  - Progressive multifocal leukoencephalopathy [Unknown]
